FAERS Safety Report 9424517 (Version 1)
Quarter: 2013Q3

REPORT INFORMATION
  Report Type: Spontaneous
  Country: US (occurrence: None)
  Receive Date: 20130726
  Receipt Date: 20130726
  Transmission Date: 20140515
  Serious: Yes (Life-Threatening, Hospitalization)
  Sender: FDA-Public Use
  Company Number: None

PATIENT
  Age: 34 Year
  Sex: Female

DRUGS (1)
  1. CIMZIA [Suspect]
     Dosage: INJECT 400 MG UNDER THE SKIN AT WEEKS 0,2 AND 4 FOR LOADING DOSE
     Dates: start: 20130605, end: 20130701

REACTIONS (1)
  - Convulsion [None]
